FAERS Safety Report 25044657 (Version 1)
Quarter: 2025Q1

REPORT INFORMATION
  Report Type: Other
  Country: GB (occurrence: GB)
  Receive Date: 20250306
  Receipt Date: 20250306
  Transmission Date: 20250408
  Serious: Yes (Other)
  Sender: STRIDES
  Company Number: None

PATIENT
  Age: 42 Year
  Sex: Female
  Weight: 488 kg

DRUGS (2)
  1. HYDROCORTISONE [Suspect]
     Active Substance: HYDROCORTISONE
     Indication: Adrenal insufficiency
     Route: 065
     Dates: start: 20231010
  2. HYDROCORTISONE [Suspect]
     Active Substance: HYDROCORTISONE
     Route: 065
     Dates: start: 20231010

REACTIONS (1)
  - Gastrooesophageal reflux disease [Not Recovered/Not Resolved]

NARRATIVE: CASE EVENT DATE: 20231010
